FAERS Safety Report 5945494-5 (Version None)
Quarter: 2008Q4

REPORT INFORMATION
  Report Type: 
  Country: None (occurrence: None)
  Receive Date: 20081107
  Receipt Date: 20081028
  Transmission Date: 20090506
  Serious: Yes (Hospitalization, Other)
  Sender: FDA-Public Use
  Company Number: CH-PFIZER INC-2008090807

PATIENT
  Age: 55 Year
  Sex: Male

DRUGS (5)
  1. CABERGOLINE [Suspect]
     Dosage: DAILY DOSE:4MG
  2. ROPINIROLE [Suspect]
     Dosage: DAILY DOSE:3MG
  3. LEVODOPA [Suspect]
  4. CLOZAPINE [Concomitant]
     Dosage: DAILY DOSE:150MG
  5. LORAZEPAM [Concomitant]
     Dosage: DAILY DOSE:3MG

REACTIONS (1)
  - DOPAMINE DYSREGULATION SYNDROME [None]
